FAERS Safety Report 9621356 (Version 1)
Quarter: 2013Q4

REPORT INFORMATION
  Report Type: Spontaneous
  Country: CL (occurrence: CL)
  Receive Date: 20131015
  Receipt Date: 20131015
  Transmission Date: 20140711
  Serious: Yes (Hospitalization, Other)
  Sender: FDA-Public Use
  Company Number: CL-JNJFOC-20131004597

PATIENT
  Age: 57 Year
  Sex: Male
  Weight: 73 kg

DRUGS (2)
  1. SIMPONI [Suspect]
     Indication: RHEUMATOID ARTHRITIS
     Route: 058
     Dates: start: 20130807
  2. VALAPLEX [Concomitant]
     Indication: HYPERTENSION
     Route: 065

REACTIONS (2)
  - Testicular injury [Recovered/Resolved]
  - Road traffic accident [Recovered/Resolved]
